APPROVED DRUG PRODUCT: EFINACONAZOLE
Active Ingredient: EFINACONAZOLE
Strength: 10%
Dosage Form/Route: SOLUTION;TOPICAL
Application: A212169 | Product #001
Applicant: LUPIN LTD
Approved: Mar 2, 2022 | RLD: No | RS: No | Type: DISCN